FAERS Safety Report 7981672-1 (Version None)
Quarter: 2011Q4

REPORT INFORMATION
  Report Type: 
  Country: None (occurrence: None)
  Receive Date: 20111215
  Receipt Date: 20111205
  Transmission Date: 20120403
  Serious: No
  Sender: FDA-Public Use
  Company Number: US-JNJFOC-20111202887

PATIENT
  Sex: Female
  Weight: 88.45 kg

DRUGS (5)
  1. FENTANYL-100 [Suspect]
     Indication: GOUT
     Route: 062
     Dates: start: 20111116, end: 20111201
  2. BENICAR [Concomitant]
     Indication: HYPERTENSION
  3. ZYRTEC [Concomitant]
     Indication: SEASONAL ALLERGY
  4. FENTANYL-100 [Suspect]
     Indication: GOUT
     Route: 062
     Dates: start: 20111201
  5. ANALGESICS [Concomitant]
     Indication: PAIN

REACTIONS (4)
  - UNDERDOSE [None]
  - PRODUCT QUALITY ISSUE [None]
  - INCORRECT DOSE ADMINISTERED [None]
  - WRONG TECHNIQUE IN DRUG USAGE PROCESS [None]
